FAERS Safety Report 9003759 (Version 1)
Quarter: 2013Q1

REPORT INFORMATION
  Report Type: Spontaneous
  Country: US (occurrence: US)
  Receive Date: 20130108
  Receipt Date: 20130108
  Transmission Date: 20140127
  Serious: No
  Sender: FDA-Public Use
  Company Number: US-GLAXOSMITHKLINE-A0974616A

PATIENT
  Age: 57 Year
  Sex: Male

DRUGS (10)
  1. LOVAZA [Suspect]
     Indication: BLOOD TRIGLYCERIDES INCREASED
     Dosage: 4CAP FOUR TIMES PER DAY
     Route: 048
     Dates: start: 2008
  2. JANUMET [Concomitant]
  3. NIACIN [Concomitant]
  4. EFFEXOR [Concomitant]
  5. THYROID MEDICATION [Concomitant]
  6. VITAMIN D [Concomitant]
  7. CALCIUM [Concomitant]
  8. PLAVIX [Concomitant]
  9. BABY ASPIRIN [Concomitant]
  10. NIACIN [Concomitant]
     Dates: start: 201108, end: 2011

REACTIONS (1)
  - Low density lipoprotein increased [Not Recovered/Not Resolved]
